FAERS Safety Report 10961671 (Version 1)
Quarter: 2015Q1

REPORT INFORMATION
  Report Type: Spontaneous
  Country: US (occurrence: None)
  Receive Date: 20150326
  Receipt Date: 20150326
  Transmission Date: 20150721
  Serious: Yes (Disabling)
  Sender: FDA-Public Use
  Company Number: None

PATIENT
  Age: 1 Month
  Sex: Female
  Weight: 92.99 kg

DRUGS (16)
  1. DIGOXIN. [Concomitant]
     Active Substance: DIGOXIN
  2. RED YEAST RICE [Concomitant]
     Active Substance: DIETARY SUPPLEMENT
  3. OMEPRAZOLE. [Concomitant]
     Active Substance: OMEPRAZOLE
  4. PROBIOC [Concomitant]
  5. TRAMODOL FLUOXETINE [Concomitant]
  6. OMEGA 3 FIH OIL [Concomitant]
  7. PREMARIN [Concomitant]
     Active Substance: ESTROGENS, CONJUGATED
  8. TOPIRAMATE. [Concomitant]
     Active Substance: TOPIRAMATE
  9. LEVOFLOXACIN 500 MG [Suspect]
     Active Substance: LEVOFLOXACIN
     Indication: SINUSITIS
     Dosage: 1 TABLET, ONCE DAILY, TAKEN BY MOUTH?
     Route: 048
     Dates: start: 20141216, end: 20141221
  10. B-100 COMPLEX [Concomitant]
     Active Substance: DEXPANTHENOL\NIACINAMIDE\PYRIDOXINE HYDROCHLORIDE\RIBOFLAVIN 5^-PHOSPHATE SODIUM\THIAMINE HYDROCHLORIDE
  11. POTASSIUM GLUCONATE [Concomitant]
     Active Substance: POTASSIUM GLUCONATE
  12. LEVOFLOXACIN 500 MG [Suspect]
     Active Substance: LEVOFLOXACIN
     Indication: PSEUDOMONAS INFECTION
     Dosage: 1 TABLET, ONCE DAILY, TAKEN BY MOUTH?
     Route: 048
     Dates: start: 20141216, end: 20141221
  13. CALCIUM CTIRATE WITH D [Concomitant]
  14. IRBESARTAN. [Concomitant]
     Active Substance: IRBESARTAN
  15. ASPIRIN. [Concomitant]
     Active Substance: ASPIRIN
  16. GUAIFENESIN. [Concomitant]
     Active Substance: GUAIFENESIN

REACTIONS (2)
  - Joint swelling [None]
  - Arthralgia [None]

NARRATIVE: CASE EVENT DATE: 20141221
